FAERS Safety Report 5586450-9 (Version None)
Quarter: 2008Q1

REPORT INFORMATION
  Report Type: 
  Country: None (occurrence: None)
  Receive Date: 20080110
  Receipt Date: 20071227
  Transmission Date: 20080703
  Serious: Yes (Death, Hospitalization)
  Sender: FDA-Public Use
  Company Number: JP-AMGEN-US257561

PATIENT
  Sex: Female

DRUGS (8)
  1. ENBREL [Suspect]
     Indication: RHEUMATOID ARTHRITIS
     Route: 058
     Dates: start: 20060615, end: 20071117
  2. RHEUMATREX [Suspect]
     Indication: RHEUMATOID ARTHRITIS
     Dosage: 8 MG; FREQUENCY NOT SPECIFIED
     Route: 065
     Dates: start: 20050401, end: 20060401
  3. LOXONIN [Concomitant]
     Route: 048
  4. NOVOLIN N [Concomitant]
     Dosage: NOT SPECIFIED
     Route: 042
  5. NORVASC [Concomitant]
     Route: 048
  6. PREDONINE [Concomitant]
     Route: 048
  7. ISCOTIN [Concomitant]
     Dosage: NOT SPECIFIED
     Route: 048
     Dates: start: 20050704
  8. MUCOSTA [Concomitant]
     Route: 048

REACTIONS (5)
  - CARDIAC FAILURE [None]
  - CONDITION AGGRAVATED [None]
  - DRUG INEFFECTIVE [None]
  - INTERSTITIAL LUNG DISEASE [None]
  - PNEUMONIA [None]
